FAERS Safety Report 7104898-8 (Version None)
Quarter: 2010Q4

REPORT INFORMATION
  Report Type: 
  Country: None (occurrence: None)
  Receive Date: 20101116
  Receipt Date: 20101103
  Transmission Date: 20110411
  Serious: Yes (Hospitalization)
  Sender: FDA-Public Use
  Company Number: MX-ELI_LILLY_AND_COMPANY-MX201011001443

PATIENT
  Weight: 1.3 kg

DRUGS (9)
  1. HUMALOG [Suspect]
     Indication: DIABETES MELLITUS
     Dosage: 2 U, EACH MORNING
     Route: 064
     Dates: start: 20100201, end: 20100924
  2. HUMALOG [Suspect]
     Dosage: UNK, AS NEEDED
     Route: 064
     Dates: start: 20100201, end: 20100924
  3. LANTUS [Concomitant]
     Indication: TYPE 1 DIABETES MELLITUS
     Route: 064
     Dates: end: 20100924
  4. LEVOTHYROXINE [Concomitant]
     Indication: HYPOTHYROIDISM
     Dosage: 150 MG, OTHER
     Route: 064
     Dates: end: 20100924
  5. LEVOTHYROXINE [Concomitant]
     Dosage: 175 MG, OTHER
     Dates: end: 20100924
  6. NIFEDIPINE [Concomitant]
     Indication: HYPERTENSION
     Dosage: 30 MG, DAILY (1/D)
     Route: 064
     Dates: end: 20100924
  7. CALCIUM [Concomitant]
     Indication: PREGNANCY
     Route: 064
     Dates: end: 20100924
  8. IRON [Concomitant]
     Indication: PREGNANCY
     Route: 064
     Dates: end: 20100924
  9. FOLIC ACID [Concomitant]
     Indication: PREGNANCY
     Route: 064
     Dates: end: 20100924

REACTIONS (4)
  - DRUG EXPOSURE DURING PREGNANCY [None]
  - FEEDING DISORDER NEONATAL [None]
  - PHOTOTHERAPY [None]
  - PREMATURE BABY [None]
